FAERS Safety Report 6071143-4 (Version None)
Quarter: 2009Q1

REPORT INFORMATION
  Report Type: 
  Country: None (occurrence: None)
  Receive Date: 20090209
  Receipt Date: 20090128
  Transmission Date: 20090719
  Serious: Yes (Hospitalization)
  Sender: FDA-Public Use
  Company Number: US-ELI_LILLY_AND_COMPANY-US200901005191

PATIENT
  Sex: Female

DRUGS (8)
  1. FORTEO [Suspect]
     Indication: OSTEOPOROSIS
     Dosage: 20 UG, DAILY (1/D)
     Dates: start: 20070101, end: 20080728
  2. HYDROCODONE BITARTRATE [Concomitant]
  3. VITAMIN D [Concomitant]
  4. PROZAC [Concomitant]
  5. ACIPHEX [Concomitant]
  6. LORAZEPAM [Concomitant]
  7. MULTI-VITAMIN [Concomitant]
  8. FISH OIL [Concomitant]

REACTIONS (6)
  - CHOLECYSTECTOMY [None]
  - HERNIA [None]
  - HERNIA REPAIR [None]
  - INJECTION SITE HAEMATOMA [None]
  - PERFORATION BILE DUCT [None]
  - POST PROCEDURAL COMPLICATION [None]
